FAERS Safety Report 9213152 (Version 1)
Quarter: 2013Q1

REPORT INFORMATION
  Report Type: Spontaneous
  Country: US (occurrence: None)
  Receive Date: 20120820
  Receipt Date: 20120820
  Transmission Date: 20140127
  Serious: No
  Sender: FDA-Public Use
  Company Number: 1000036953

PATIENT
  Age: 84 Year
  Sex: Female

DRUGS (5)
  1. VIIBRYD (VILAZODONE)(10 MILLIGRAM, TABLETS) [Suspect]
     Indication: DEPRESSION
     Route: 048
     Dates: start: 20120621, end: 20120627
  2. VIIBRYD (VILAZODONE)(10 MILLIGRAM, TABLETS) [Suspect]
     Indication: ANXIETY
     Route: 048
     Dates: start: 20120621, end: 20120627
  3. VIIBRYD (VILAZODONE) [Suspect]
     Indication: ANXIETY
     Route: 048
     Dates: start: 20120705, end: 20120712
  4. VIIBRYD (VILAZODONE) [Suspect]
     Indication: DEPRESSION
     Route: 048
     Dates: start: 20120705, end: 20120712
  5. ADVIL (IBUPROFEN) [Concomitant]

REACTIONS (5)
  - Nausea [None]
  - Insomnia [None]
  - Fatigue [None]
  - Abdominal pain upper [None]
  - Dizziness [None]
